FAERS Safety Report 7476251 (Version 6)
Quarter: 2012Q4

REPORT INFORMATION
  Report Type: 
  Country: DK (occurrence: DK)
  Receive Date: 20100715
  Receipt Date: 20121221
  Transmission Date: 20130627
  Serious: Yes (Hospitalization, Other)
  Sender: FDA-Public Use
  Company Number: PHHY2010DK41458

PATIENT
  Age: 70 Year
  Sex: Male
  Weight: 75 kg

DRUGS (6)
  1. LAMISIL [Suspect]
     Indication: DERMATOPHYTOSIS
     Dosage: 250 milligram (s)
     Route: 048
     Dates: start: 20091026, end: 20091125
  2. LAMISIL [Suspect]
     Indication: ONYCHOMYCOSIS
  3. POTASSIUM PERMANGANATE [Concomitant]
  4. PREDNISOLONE [Concomitant]
     Indication: PRURITUS
     Dates: start: 201205
  5. SINQUAN [Concomitant]
  6. IMUREL [Concomitant]

REACTIONS (11)
  - Depression [Recovered/Resolved]
  - Epididymal infection [Recovered/Resolved]
  - Erectile dysfunction [Unknown]
  - Mood altered [Unknown]
  - Photodermatosis [Recovering/Resolving]
  - Pruritus [Not Recovered/Not Resolved]
  - Rash pruritic [Recovered/Resolved]
  - Hypersensitivity [Recovered/Resolved]
  - Insomnia [Recovered/Resolved]
  - Rash [Unknown]
  - Eczema [Not Recovered/Not Resolved]
